FAERS Safety Report 8556244-0 (Version None)
Quarter: 2012Q3

REPORT INFORMATION
  Report Type: 
  Country: None (occurrence: None)
  Receive Date: 20120801
  Receipt Date: 20120723
  Transmission Date: 20120928
  Serious: Yes (Hospitalization)
  Sender: FDA-Public Use
  Company Number: JP-VERTEX PHARMACEUTICALS INC.-AE-2012-010915

PATIENT
  Age: 61 Year
  Sex: Male

DRUGS (12)
  1. REBETOL [Concomitant]
     Route: 048
     Dates: start: 20120614, end: 20120719
  2. FERROUS FUMARATE [Concomitant]
     Route: 048
  3. NOVOLIN R [Concomitant]
     Route: 058
     Dates: start: 20120601
  4. MIRCERA [Concomitant]
     Route: 058
     Dates: start: 20120614, end: 20120614
  5. PEG-INTRON [Concomitant]
     Route: 058
     Dates: start: 20120621, end: 20120628
  6. PEG-INTRON [Concomitant]
     Route: 058
     Dates: start: 20120705, end: 20120712
  7. TELAVIC (TELAPREVIR) [Suspect]
     Indication: HEPATITIS C
     Route: 048
     Dates: start: 20120530, end: 20120719
  8. REBETOL [Concomitant]
     Indication: HEPATITIS C
     Route: 048
     Dates: start: 20120530, end: 20120613
  9. GLYCYRON [Concomitant]
     Route: 048
  10. JUZENTAIHOTO [Concomitant]
     Route: 048
  11. PEG-INTRON [Concomitant]
     Indication: HEPATITIS C
     Route: 058
     Dates: start: 20120530, end: 20120613
  12. MIRCERA [Concomitant]
     Route: 058
     Dates: start: 20120526, end: 20120526

REACTIONS (1)
  - DRUG ERUPTION [None]
